FAERS Safety Report 4620729-X (Version None)
Quarter: 2005Q2

REPORT INFORMATION
  Report Type: 
  Country: None (occurrence: None)
  Receive Date: 20050321
  Receipt Date: 20040625
  Transmission Date: 20051028
  Serious: Yes (Life-Threatening, Hospitalization)
  Sender: FDA-Public Use
  Company Number: 2004-06-1961

PATIENT
  Age: 37 Year
  Sex: Male
  Weight: 107.9561 kg

DRUGS (12)
  1. PEG-INTRON [Suspect]
     Indication: HEPATITIS C
     Dosage: 150 MCG QWK SUBCUTANEOUS
     Route: 058
     Dates: start: 20040405, end: 20040617
  2. REBETOL [Suspect]
     Indication: HEPATITIS C
     Dosage: 1400 MG QD ORAL
     Route: 048
     Dates: start: 20040405, end: 20040617
  3. DURAGESIC TRANSDERMAL [Concomitant]
  4. TRAZODONE [Concomitant]
  5. REGLAN [Concomitant]
  6. PROTONIX [Concomitant]
  7. LANTUS [Concomitant]
  8. FERROUS SULFATE TAB [Concomitant]
  9. SEROQUEL (QUETIAPINE FUMURATE) [Concomitant]
  10. SEROQUEL (QUETIAPINE FUMURATE) [Concomitant]
  11. PAXIL CONTROLLED RELEASE TABLETS [Concomitant]
  12. HUMALOG (INSULIN ANALOG) [Concomitant]

REACTIONS (7)
  - ABDOMINAL PAIN [None]
  - AMNESIA [None]
  - BIPOLAR I DISORDER [None]
  - CONFUSIONAL STATE [None]
  - IMPAIRED GASTRIC EMPTYING [None]
  - NAUSEA [None]
  - VOMITING [None]
